FAERS Safety Report 23931267 (Version 1)
Quarter: 2024Q2

REPORT INFORMATION
  Report Type: Spontaneous
  Country: US (occurrence: US)
  Receive Date: 20240603
  Receipt Date: 20240603
  Transmission Date: 20240716
  Serious: No
  Sender: FDA-Public Use
  Company Number: US-ABBVIE-5779816

PATIENT
  Sex: Female

DRUGS (1)
  1. SYNTHROID [Suspect]
     Active Substance: LEVOTHYROXINE SODIUM
     Indication: Product used for unknown indication
     Route: 048
     Dates: start: 2014

REACTIONS (5)
  - Rash macular [Unknown]
  - Fatigue [Unknown]
  - Decreased interest [Unknown]
  - Alopecia [Unknown]
  - Depression [Unknown]

NARRATIVE: CASE EVENT DATE: 20240101
